FAERS Safety Report 8370925-3 (Version None)
Quarter: 2012Q2

REPORT INFORMATION
  Report Type: 
  Country: None (occurrence: None)
  Receive Date: 20120518
  Receipt Date: 20110906
  Transmission Date: 20120825
  Serious: No
  Sender: FDA-Public Use
  Company Number: US-BAUSCH-2011BL006043

PATIENT
  Age: 70 Year
  Sex: Female

DRUGS (3)
  1. IPRATROPIUM BROMIDE [Suspect]
     Indication: RHINORRHOEA
     Route: 045
     Dates: start: 20110101, end: 20110801
  2. AMBIEN [Concomitant]
     Indication: INSOMNIA
     Route: 048
  3. SYNTHROID [Concomitant]

REACTIONS (2)
  - RASH [None]
  - SKIN BURNING SENSATION [None]
